FAERS Safety Report 5921210-8 (Version None)
Quarter: 2008Q4

REPORT INFORMATION
  Report Type: 
  Country: None (occurrence: None)
  Receive Date: 20081016
  Receipt Date: 20081008
  Transmission Date: 20090506
  Serious: No
  Sender: FDA-Public Use
  Company Number: US-B.I. PHARMACEUTICALS,INC./RIDGEFIELD-2008-BP-14636BP

PATIENT
  Sex: Female

DRUGS (12)
  1. SPIRIVA [Suspect]
     Indication: CHRONIC OBSTRUCTIVE PULMONARY DISEASE
     Dosage: 18MCG
     Route: 055
     Dates: start: 20060901
  2. SPIRIVA [Suspect]
     Indication: BRONCHITIS CHRONIC
  3. SPIRIVA [Suspect]
     Indication: ASTHMA
  4. FORADIL [Concomitant]
  5. FLOVENT [Concomitant]
  6. CLARITIN [Concomitant]
  7. SINGULAIR [Concomitant]
  8. PREVACID [Concomitant]
  9. VITAMIN B COMPLEX CAP [Concomitant]
  10. CENTRUM FOR SENIORS [Concomitant]
  11. OSCAL [Concomitant]
  12. ALBUTEROL [Concomitant]

REACTIONS (1)
  - DYSPNOEA [None]
